FAERS Safety Report 8461284-6 (Version None)
Quarter: 2012Q2

REPORT INFORMATION
  Report Type: 
  Country: None (occurrence: None)
  Receive Date: 20120625
  Receipt Date: 20120613
  Transmission Date: 20120825
  Serious: Yes (Hospitalization, Other)
  Sender: FDA-Public Use
  Company Number: CA-JNJFOC-20120408616

PATIENT
  Sex: Male
  Weight: 61 kg

DRUGS (5)
  1. METOCLOPRAMIDE [Concomitant]
     Route: 048
  2. REMICADE [Suspect]
     Indication: CROHN'S DISEASE
     Dosage: DOSE: 900 MG.
     Route: 042
  3. METHOTREXATE [Concomitant]
     Route: 048
  4. REMICADE [Suspect]
     Route: 042
     Dates: start: 20081110
  5. FOLIC ACID [Concomitant]
     Route: 065

REACTIONS (5)
  - INTESTINAL STENOSIS [None]
  - EAR INFECTION [None]
  - CROHN'S DISEASE [None]
  - PHARYNGITIS [None]
  - DRUG EFFECT DECREASED [None]
